FAERS Safety Report 7495718-0 (Version None)
Quarter: 2011Q2

REPORT INFORMATION
  Report Type: 
  Country: None (occurrence: None)
  Receive Date: 20110523
  Receipt Date: 20110513
  Transmission Date: 20111010
  Serious: Yes (Death, Other)
  Sender: FDA-Public Use
  Company Number: US-JNJFOC-20101007536

PATIENT
  Sex: Male
  Weight: 107.5 kg

DRUGS (6)
  1. HUMIRA [Suspect]
     Indication: PSORIASIS
     Dates: start: 20090904
  2. STELARA [Suspect]
     Route: 058
     Dates: start: 20100408
  3. STELARA [Suspect]
     Route: 058
     Dates: start: 20100729
  4. HUMIRA [Suspect]
     Dates: start: 20091103
  5. STELARA [Suspect]
     Indication: PSORIASIS
     Dosage: 2 DOSES TOTAL
     Route: 058
     Dates: start: 20100310
  6. LISINOPRIL [Concomitant]
     Indication: HYPERTENSION

REACTIONS (4)
  - ARTERIOSCLEROSIS [None]
  - HYPERTENSIVE HEART DISEASE [None]
  - PRURITUS [None]
  - OROPHARYNGEAL PAIN [None]
